APPROVED DRUG PRODUCT: VANIQA
Active Ingredient: EFLORNITHINE HYDROCHLORIDE
Strength: 13.9%
Dosage Form/Route: CREAM;TOPICAL
Application: N021145 | Product #001
Applicant: ABBVIE INC
Approved: Jul 27, 2000 | RLD: Yes | RS: No | Type: DISCN